FAERS Safety Report 7832305-6 (Version None)
Quarter: 2011Q4

REPORT INFORMATION
  Report Type: 
  Country: None (occurrence: None)
  Receive Date: 20111022
  Receipt Date: 20111003
  Transmission Date: 20120403
  Serious: Yes (Other)
  Sender: FDA-Public Use
  Company Number: US-BAYER-2011-031408

PATIENT
  Age: 25 Year
  Sex: Female
  Weight: 52.154 kg

DRUGS (16)
  1. ASCORBIC ACID [Concomitant]
     Dosage: UNK UNK, QD
  2. D-MANNOSE [Concomitant]
     Dosage: UNK UNK, QD
  3. FISH OIL [Concomitant]
     Dosage: UNK UNK, QD
  4. YASMIN [Suspect]
     Dosage: UNK
     Dates: start: 20030601, end: 20090701
  5. DROSPIRENONE AND ETHINYL ESTRADIOL [Suspect]
     Dosage: UNK
     Dates: start: 20030601, end: 20090701
  6. PREVACID [Concomitant]
  7. CALCIUM CARBONATE [Concomitant]
     Dosage: UNK UNK, QD
  8. MACROBID [Concomitant]
  9. ZITHROMAX [Concomitant]
  10. SEPTRA DS [Concomitant]
  11. CRANBERRY [Concomitant]
     Dosage: UNK UNK, QD
  12. LORATADINE AND PSEUDOEPHEDRINE SULFATE [Concomitant]
     Dosage: UNK UNK, QD
  13. VITAMIN E [Concomitant]
     Dosage: UNK UNK, QD
  14. ALIMENTARY TRACT AND METABOLISM [Concomitant]
     Dosage: UNK UNK, QD
  15. VACCINIUM MYRTILLUS [Concomitant]
     Dosage: UNK UNK, QD
  16. CLARITIN-D 24 HOUR [Concomitant]
     Dosage: UNK UNK, QD

REACTIONS (4)
  - PAIN [None]
  - NEPHROLITHIASIS [None]
  - CYSTITIS [None]
  - CHOLELITHIASIS [None]
